FAERS Safety Report 8912990 (Version 1)
Quarter: 2012Q4

REPORT INFORMATION
  Report Type: Spontaneous
  Country: US (occurrence: None)
  Receive Date: 20121114
  Receipt Date: 20121114
  Transmission Date: 20130627
  Serious: Yes (Other)
  Sender: FDA-Public Use
  Company Number: None

PATIENT
  Age: 42 Year
  Sex: Male
  Weight: 108.86 kg

DRUGS (2)
  1. AMOXICILLIN [Suspect]
     Dosage: DAILY Other
     Route: 050
  2. CIDOFOVIR [Suspect]
     Dosage: DAILY Other
     Route: 050

REACTIONS (3)
  - Drug ineffective [None]
  - Genital lesion [None]
  - Condition aggravated [None]
